FAERS Safety Report 7500602-X (Version None)
Quarter: 2011Q2

REPORT INFORMATION
  Report Type: 
  Country: None (occurrence: None)
  Receive Date: 20110524
  Receipt Date: 20100726
  Transmission Date: 20111010
  Serious: No
  Sender: FDA-Public Use
  Company Number: US-NOVEN-ALL1-2010-04017

PATIENT

DRUGS (5)
  1. TENEX [Concomitant]
     Dosage: 3 MG, 1X/DAY:QD
     Route: 048
  2. DAYTRANA [Suspect]
     Dosage: 10 MG, 1X/DAY:QD
     Route: 062
     Dates: start: 20100101
  3. DAYTRANA [Suspect]
     Dosage: 30 MG, 1X/DAY:QD
     Route: 062
     Dates: start: 20090101, end: 20100101
  4. DAYTRANA [Suspect]
     Dosage: UNK MG, 1X/DAY:QD (ONE HALF OF A 15 MG PATCH)
     Route: 062
     Dates: start: 20100101, end: 20100101
  5. DAYTRANA [Suspect]
     Dosage: 15 MG, 1X/DAY:QD
     Route: 062
     Dates: start: 20100101, end: 20100101

REACTIONS (5)
  - APPLICATION SITE ERYTHEMA [None]
  - WRONG TECHNIQUE IN DRUG USAGE PROCESS [None]
  - DRUG EFFECT INCREASED [None]
  - APPLICATION SITE PRURITUS [None]
  - PRODUCT QUALITY ISSUE [None]
